FAERS Safety Report 5055218-4 (Version None)
Quarter: 2006Q3

REPORT INFORMATION
  Report Type: 
  Country: None (occurrence: None)
  Receive Date: 20060714
  Receipt Date: 20060704
  Transmission Date: 20061208
  Serious: No
  Sender: FDA-Public Use
  Company Number: E3810-00009-SPO-AU

PATIENT
  Sex: Female

DRUGS (1)
  1. RABEPRAZOLE SODIUM [Suspect]
     Dosage: ORAL/NUMBER OF YEARS AGO
     Route: 048

REACTIONS (1)
  - RENAL IMPAIRMENT [None]
